FAERS Safety Report 20701426 (Version 12)
Quarter: 2022Q2

REPORT INFORMATION
  Report Type: Report from Study
  Country: BR (occurrence: None)
  Receive Date: 20220412
  Receipt Date: 20220610
  Transmission Date: 20220721
  Serious: Yes (Death, Hospitalization)
  Sender: FDA-Public Use
  Company Number: BR-ROCHE-3071452

PATIENT
  Age: 63 Year
  Sex: Male
  Weight: 86 kg

DRUGS (35)
  1. OBINUTUZUMAB [Suspect]
     Active Substance: OBINUTUZUMAB
     Indication: Follicular lymphoma
     Dosage: DATE OF MOST RECENT DOSE OF STUDY DRUG  PRIOR TO AE/SAE ONSET 23/MAR/2022
     Route: 042
     Dates: start: 20200527
  2. BENDAMUSTINE [Suspect]
     Active Substance: BENDAMUSTINE
     Indication: Follicular lymphoma
     Dosage: ON DAYS 1 AND 2 FOR CYCLES 1-6, FOR SIX 28-DAY CYCLES.?LAST DOSE WAS ADMINISTERED ON 22/OCT/2020 IN
     Route: 042
     Dates: start: 20200527
  3. DIPHENHYDRAMINE [Concomitant]
     Active Substance: DIPHENHYDRAMINE
     Indication: Premedication
     Dosage: CYCLE 1 DAY 1
     Route: 042
     Dates: start: 20200527, end: 20200527
  4. DIPHENHYDRAMINE [Concomitant]
     Active Substance: DIPHENHYDRAMINE
     Dosage: CYCLE 1 DAY 8
     Route: 042
     Dates: start: 20200603, end: 20200603
  5. DIPHENHYDRAMINE [Concomitant]
     Active Substance: DIPHENHYDRAMINE
     Dosage: CYCLE 2 DAY 1
     Route: 042
     Dates: start: 20200701, end: 20200701
  6. DIPHENHYDRAMINE [Concomitant]
     Active Substance: DIPHENHYDRAMINE
     Dosage: CYCLE 3 DAY 1
     Route: 042
     Dates: start: 20200729, end: 20200729
  7. DIPHENHYDRAMINE [Concomitant]
     Active Substance: DIPHENHYDRAMINE
     Dosage: CYCLE 4 DAY 1
     Route: 042
     Dates: start: 20200826, end: 20200826
  8. DIPHENHYDRAMINE [Concomitant]
     Active Substance: DIPHENHYDRAMINE
     Dosage: CYCLE 5 DAY 1
     Route: 042
     Dates: start: 20200923, end: 20200923
  9. DIPHENHYDRAMINE [Concomitant]
     Active Substance: DIPHENHYDRAMINE
     Dosage: CYCLE 6 DAY 1
     Route: 042
     Dates: start: 20201021, end: 20201021
  10. DIPHENHYDRAMINE [Concomitant]
     Active Substance: DIPHENHYDRAMINE
     Dosage: MAINTENANCE WEEK 01
     Route: 042
     Dates: start: 20201216, end: 20201216
  11. DIPHENHYDRAMINE [Concomitant]
     Active Substance: DIPHENHYDRAMINE
     Dosage: MAINTENANCE WEEK 09
     Route: 042
     Dates: start: 20210210, end: 20210210
  12. DIPHENHYDRAMINE [Concomitant]
     Active Substance: DIPHENHYDRAMINE
     Dosage: MAINTENANCE WEEK 17
     Route: 042
     Dates: start: 20210407, end: 20210407
  13. DIPHENHYDRAMINE [Concomitant]
     Active Substance: DIPHENHYDRAMINE
     Dosage: MAINTENANCE WEEK 25
     Route: 042
     Dates: start: 20210610, end: 20210610
  14. DIPHENHYDRAMINE [Concomitant]
     Active Substance: DIPHENHYDRAMINE
     Dosage: MAINTENANCE WEEK 33
     Route: 042
     Dates: start: 20210811, end: 20210811
  15. DIPHENHYDRAMINE [Concomitant]
     Active Substance: DIPHENHYDRAMINE
     Dosage: MAINTENANCE WEEK 41
     Route: 042
     Dates: start: 20211006, end: 20211006
  16. DIPHENHYDRAMINE [Concomitant]
     Active Substance: DIPHENHYDRAMINE
     Dosage: MAINTENANCE WEEK 57
     Route: 042
     Dates: start: 20220131, end: 20220131
  17. DIPHENHYDRAMINE [Concomitant]
     Active Substance: DIPHENHYDRAMINE
     Dosage: MAINTENANCE WEEK 65
     Route: 042
     Dates: start: 20220323, end: 20220323
  18. ACETAMINOPHEN [Concomitant]
     Active Substance: ACETAMINOPHEN
     Indication: Premedication
     Dosage: CYCLE 1 DAY 1
     Route: 048
     Dates: start: 20200527, end: 20200527
  19. ACETAMINOPHEN [Concomitant]
     Active Substance: ACETAMINOPHEN
     Dosage: CYCLE 1 DAY 8 (1)
     Route: 048
     Dates: start: 20200603, end: 20200603
  20. ACETAMINOPHEN [Concomitant]
     Active Substance: ACETAMINOPHEN
     Dosage: CYCLE 02 DAY 1
     Route: 048
     Dates: start: 20200701, end: 20200701
  21. ACETAMINOPHEN [Concomitant]
     Active Substance: ACETAMINOPHEN
     Dosage: CYCLE 03 DAY 1
     Route: 048
     Dates: start: 20200729, end: 20200729
  22. ACETAMINOPHEN [Concomitant]
     Active Substance: ACETAMINOPHEN
     Dosage: CYCLE 04 DAY 1
     Route: 048
     Dates: start: 20200826, end: 20200826
  23. ACETAMINOPHEN [Concomitant]
     Active Substance: ACETAMINOPHEN
     Dosage: CYCLE 05 DAY 1
     Route: 048
     Dates: start: 20200923, end: 20200923
  24. ACETAMINOPHEN [Concomitant]
     Active Substance: ACETAMINOPHEN
     Dosage: CYCLE 06 DAY 1
     Route: 048
     Dates: start: 20201021, end: 20201021
  25. ACETAMINOPHEN [Concomitant]
     Active Substance: ACETAMINOPHEN
     Dosage: MAINTENANCE WEEK 01
     Route: 048
     Dates: start: 20201216, end: 20201216
  26. ACETAMINOPHEN [Concomitant]
     Active Substance: ACETAMINOPHEN
     Dosage: MAINTENANCE WEEK 09
     Route: 048
     Dates: start: 20210210, end: 20210210
  27. ACETAMINOPHEN [Concomitant]
     Active Substance: ACETAMINOPHEN
     Dosage: MAINTENANCE WEEK 17
     Route: 048
     Dates: start: 20210407, end: 20210407
  28. ACETAMINOPHEN [Concomitant]
     Active Substance: ACETAMINOPHEN
     Dosage: MAINTENANCE WEEK 25
     Route: 048
     Dates: start: 20210610, end: 20210610
  29. ACETAMINOPHEN [Concomitant]
     Active Substance: ACETAMINOPHEN
     Dosage: MAINTENANCE WEEK 33
     Route: 048
     Dates: start: 20210811, end: 20210811
  30. ACETAMINOPHEN [Concomitant]
     Active Substance: ACETAMINOPHEN
     Dosage: MAINTENANCE WEEK 41
     Route: 048
     Dates: start: 20211006, end: 20211006
  31. ACETAMINOPHEN [Concomitant]
     Active Substance: ACETAMINOPHEN
     Dosage: MAINTENANCE WEEK 49
     Route: 048
     Dates: start: 20211201, end: 20211201
  32. ACETAMINOPHEN [Concomitant]
     Active Substance: ACETAMINOPHEN
     Dosage: MAINTENANCE WEEK 57
     Route: 048
     Dates: start: 20220131, end: 20220131
  33. ACETAMINOPHEN [Concomitant]
     Active Substance: ACETAMINOPHEN
     Dosage: MAINTENANCE WEEK 65
     Route: 048
     Dates: start: 20220323, end: 20220323
  34. AZITHROMYCIN [Concomitant]
     Active Substance: AZITHROMYCIN
     Dates: start: 20220331, end: 20220403
  35. DEXAMETHASONE [Concomitant]
     Active Substance: DEXAMETHASONE
     Dates: start: 20220331, end: 20220407

REACTIONS (2)
  - COVID-19 pneumonia [Fatal]
  - Pneumonia fungal [Not Recovered/Not Resolved]

NARRATIVE: CASE EVENT DATE: 20220331
